FAERS Safety Report 7099854-2 (Version None)
Quarter: 2010Q4

REPORT INFORMATION
  Report Type: 
  Country: None (occurrence: None)
  Receive Date: 20101112
  Receipt Date: 20101104
  Transmission Date: 20110411
  Serious: Yes (Hospitalization)
  Sender: FDA-Public Use
  Company Number: PHHY2010US74946

PATIENT
  Sex: Female

DRUGS (6)
  1. FANAPT [Suspect]
     Dosage: 6 MG, BID
     Route: 048
     Dates: start: 20100825, end: 20101104
  2. PROZAC [Concomitant]
     Dosage: 20 MG, UNK
  3. RITALIN [Concomitant]
     Dosage: UNK
  4. GABAPENTIN [Concomitant]
     Dosage: UNK
  5. KLONOPIN [Concomitant]
     Dosage: UNK
  6. LITHIUM [Concomitant]
     Dosage: UNK

REACTIONS (2)
  - HEPATIC ENZYME INCREASED [None]
  - LETHARGY [None]
